FAERS Safety Report 13000222 (Version 6)
Quarter: 2018Q4

REPORT INFORMATION
  Report Type: Report from Study
  Country: JP (occurrence: JP)
  Receive Date: 20161205
  Receipt Date: 20181129
  Transmission Date: 20190204
  Serious: Yes (Hospitalization)
  Sender: FDA-Public Use
  Company Number: JP-AMGEN-JPNCT2016163741

PATIENT
  Age: 76 Year
  Sex: Male
  Weight: 61 kg

DRUGS (14)
  1. OXALIPLATIN. [Suspect]
     Active Substance: OXALIPLATIN
     Indication: RECTAL CANCER
     Dosage: 107 MG, Q2WEEKS
     Route: 041
     Dates: start: 20160920, end: 20160920
  2. OXALIPLATIN. [Suspect]
     Active Substance: OXALIPLATIN
     Dosage: 107 MG, Q2WEEKS
     Route: 041
     Dates: start: 20161018, end: 20161101
  3. VALSARTAN. [Concomitant]
     Active Substance: VALSARTAN
     Indication: HYPERTENSION
     Dosage: 40 MG, QD
     Route: 048
     Dates: end: 20161124
  4. FLUOROURACIL. [Suspect]
     Active Substance: FLUOROURACIL
     Indication: RECTAL CANCER
     Dosage: 333 MG, Q2WK
     Route: 040
     Dates: start: 20160920, end: 20160920
  5. FLUOROURACIL. [Suspect]
     Active Substance: FLUOROURACIL
     Dosage: 3320 MG, Q2WEEKS
     Route: 041
     Dates: start: 20160920, end: 20160920
  6. CALCIUM LEVOFOLINATE [Concomitant]
     Active Substance: LEVOLEUCOVORIN CALCIUM
     Indication: RECTAL CANCER
     Dosage: 330 MG, Q2WEEKS
     Route: 041
     Dates: start: 20160920, end: 20160920
  7. PANITUMUMAB [Suspect]
     Active Substance: PANITUMUMAB
     Dosage: 369 MG, Q2WK
     Route: 041
     Dates: start: 20161018, end: 20161101
  8. FLUOROURACIL. [Suspect]
     Active Substance: FLUOROURACIL
     Dosage: 3320 MG, Q2WK
     Route: 041
     Dates: start: 20161018, end: 20161101
  9. CALCIUM LEVOFOLINATE [Concomitant]
     Active Substance: LEVOLEUCOVORIN CALCIUM
     Dosage: 330 MG, Q2WEEKS
     Route: 041
     Dates: start: 20161018, end: 20161101
  10. GLIMEPIRIDE. [Concomitant]
     Active Substance: GLIMEPIRIDE
     Dosage: 1.5 MG, QD
     Route: 048
     Dates: end: 20161123
  11. ACETYLSALICYLIC ACID [Concomitant]
     Active Substance: ASPIRIN
     Indication: THROMBOSIS PROPHYLAXIS
     Dosage: 1 DF, QD
     Route: 048
  12. PANITUMUMAB [Suspect]
     Active Substance: PANITUMUMAB
     Indication: RECTAL CANCER
     Dosage: 369 MG, Q2WK
     Route: 041
     Dates: start: 20160920, end: 20160920
  13. SITAGLIPTIN PHOSPHATE [Concomitant]
     Active Substance: SITAGLIPTIN PHOSPHATE
     Dosage: 50 MG, QD
     Route: 048
     Dates: end: 20161123
  14. FLUOROURACIL. [Suspect]
     Active Substance: FLUOROURACIL
     Dosage: 3320 MG, Q2WEEKS
     Route: 041
     Dates: start: 20161018, end: 20161101

REACTIONS (5)
  - Stomatitis [Recovering/Resolving]
  - Hypernatraemia [Recovered/Resolved]
  - Diarrhoea [Recovered/Resolved]
  - Decreased appetite [Recovered/Resolved]
  - Dermatitis acneiform [Recovering/Resolving]

NARRATIVE: CASE EVENT DATE: 20161122
